FAERS Safety Report 6661724-9 (Version None)
Quarter: 2010Q1

REPORT INFORMATION
  Report Type: 
  Country: None (occurrence: None)
  Receive Date: 20100331
  Receipt Date: 20090513
  Transmission Date: 20100710
  Serious: Yes (Other)
  Sender: FDA-Public Use
  Company Number: US-BRISTOL-MYERS SQUIBB COMPANY-14618631

PATIENT
  Age: 67 Year
  Sex: Female

DRUGS (6)
  1. ERBITUX [Suspect]
     Indication: LUNG NEOPLASM MALIGNANT
     Dosage: BADING DOSE
     Route: 042
     Dates: start: 20090511
  2. PEPCID [Concomitant]
     Indication: PREMEDICATION
  3. ALOXI [Concomitant]
     Indication: PREMEDICATION
  4. BENADRYL [Concomitant]
     Indication: PREMEDICATION
  5. DECADRON [Concomitant]
     Indication: PREMEDICATION
  6. ALBUTEROL [Concomitant]
     Indication: PREMEDICATION

REACTIONS (2)
  - ERYTHEMA [None]
  - PRURITUS [None]
